FAERS Safety Report 13500308 (Version 1)
Quarter: 2017Q2

REPORT INFORMATION
  Report Type: Spontaneous
  Country: US (occurrence: US)
  Receive Date: 20170501
  Receipt Date: 20170501
  Transmission Date: 20170830
  Serious: No
  Sender: FDA-Public Use
  Company Number: None

PATIENT
  Age: 65 Year
  Sex: Male
  Weight: 126.6 kg

DRUGS (1)
  1. APOMORPHINE [Suspect]
     Active Substance: APOMORPHINE
     Route: 042
     Dates: start: 20160505, end: 20160505

REACTIONS (3)
  - Hypotension [None]
  - Hyperhidrosis [None]
  - Bradycardia [None]

NARRATIVE: CASE EVENT DATE: 20160505
